FAERS Safety Report 10248589 (Version 1)
Quarter: 2014Q2

REPORT INFORMATION
  Report Type: Spontaneous
  Country: US (occurrence: None)
  Receive Date: 20140617
  Receipt Date: 20140617
  Transmission Date: 20141212
  Serious: No
  Sender: FDA-Public Use
  Company Number: None

PATIENT
  Age: 36 Year
  Sex: Male

DRUGS (1)
  1. AXIRON [Suspect]
     Dates: start: 20140607

REACTIONS (4)
  - Application site erythema [None]
  - Application site pain [None]
  - Application site swelling [None]
  - Pain [None]
